FAERS Safety Report 8837429 (Version 1)
Quarter: 2012Q4

REPORT INFORMATION
  Report Type: 
  Country: ES (occurrence: ES)
  Receive Date: 20121012
  Receipt Date: 20121012
  Transmission Date: 20130627
  Serious: Yes (Other)
  Sender: FDA-Public Use
  Company Number: ES-BAYER-2011-097434

PATIENT
  Age: 29 Year
  Sex: Female
  Weight: 55 kg

DRUGS (2)
  1. YAZ [Suspect]
     Dosage: 1 DF, QD
     Route: 048
  2. OLIGOAMNIOS [Concomitant]
     Indication: FOETAL GROWTH RESTRICTION

REACTIONS (4)
  - Pregnancy on oral contraceptive [Not Recovered/Not Resolved]
  - Amenorrhoea [Not Recovered/Not Resolved]
  - Premature labour [None]
  - Foetal distress syndrome [None]
